FAERS Safety Report 7342151-8 (Version None)
Quarter: 2011Q1

REPORT INFORMATION
  Report Type: 
  Country: None (occurrence: None)
  Receive Date: 20110309
  Receipt Date: 20110303
  Transmission Date: 20110831
  Serious: Yes (Hospitalization)
  Sender: FDA-Public Use
  Company Number: NL-MERCK-1103NLD00006

PATIENT
  Age: 46 Year
  Sex: Female
  Weight: 82 kg

DRUGS (4)
  1. POLYETHYLENE GLYCOL 3350 [Concomitant]
     Route: 048
  2. FORMOTEROL FUMARATE [Concomitant]
     Route: 055
  3. BUDESONIDE [Concomitant]
     Route: 055
  4. SINGULAIR [Suspect]
     Indication: ASTHMA
     Route: 048
     Dates: start: 20100801, end: 20101210

REACTIONS (1)
  - MEMBRANOUS LIPODYSTROPHY [None]
